FAERS Safety Report 25827380 (Version 1)
Quarter: 2025Q3

REPORT INFORMATION
  Report Type: Spontaneous
  Country: US (occurrence: US)
  Receive Date: 20250920
  Receipt Date: 20250920
  Transmission Date: 20251020
  Serious: Yes (Other)
  Sender: AMGEN
  Company Number: US-AMGEN-USASP2025182567

PATIENT
  Age: 3 Year
  Sex: Male

DRUGS (13)
  1. RITUXIMAB [Suspect]
     Active Substance: RITUXIMAB
     Indication: Heart transplant rejection
     Route: 065
     Dates: start: 2023
  2. PREDNISONE [Suspect]
     Active Substance: PREDNISONE
     Indication: Heart transplant rejection
     Route: 065
     Dates: start: 2023
  3. TACROLIMUS [Concomitant]
     Active Substance: TACROLIMUS
     Indication: Immunosuppression
  4. SIROLIMUS [Concomitant]
     Active Substance: SIROLIMUS
     Indication: Immunosuppression
  5. Immunoglobulin [Concomitant]
     Indication: Heart transplant rejection
     Route: 040
     Dates: start: 2023
  6. TOLODODEKIN ALFA [Concomitant]
     Active Substance: TOLODODEKIN ALFA
     Indication: Heart transplant rejection
     Dosage: 16 MILLIGRAM/KILOGRAM, Q2WK, FOR 3-4 DOSES
     Dates: start: 2023
  7. TOLODODEKIN ALFA [Concomitant]
     Active Substance: TOLODODEKIN ALFA
     Dosage: 16 MILLIGRAM/KILOGRAM, QMO
  8. ACETAMINOPHEN [Concomitant]
     Active Substance: ACETAMINOPHEN
     Dates: start: 2023
  9. DIPHENHYDRAMINE [Concomitant]
     Active Substance: DIPHENHYDRAMINE
     Dates: start: 2023
  10. FAMOTIDINE [Concomitant]
     Active Substance: FAMOTIDINE
     Dates: start: 2023
  11. MONTELUKAST [Concomitant]
     Active Substance: MONTELUKAST
     Dates: start: 2023
  12. METHYLPREDNISOLONE [Concomitant]
     Active Substance: METHYLPREDNISOLONE
     Dates: start: 2023
  13. METHYLPREDNISOLONE [Concomitant]
     Active Substance: METHYLPREDNISOLONE

REACTIONS (4)
  - Laboratory test abnormal [Unknown]
  - Donor specific antibody present [Unknown]
  - Off label use [Unknown]
  - Drug ineffective for unapproved indication [Unknown]

NARRATIVE: CASE EVENT DATE: 20230101
